FAERS Safety Report 5514301-7 (Version None)
Quarter: 2007Q4

REPORT INFORMATION
  Report Type: 
  Country: None (occurrence: None)
  Receive Date: 20071113
  Receipt Date: 20070709
  Transmission Date: 20080405
  Serious: No
  Sender: FDA-Public Use
  Company Number: A0646090A

PATIENT
  Age: 86 Year
  Sex: Male

DRUGS (8)
  1. COREG [Suspect]
     Dosage: 3.125MG PER DAY
     Route: 048
     Dates: start: 20070101
  2. COREG CR [Suspect]
     Indication: HYPERTENSION
     Dosage: 10MG PER DAY
     Route: 048
  3. LASIX [Concomitant]
  4. COUMADIN [Concomitant]
  5. FELODIPINE [Concomitant]
  6. FOSINOPRIL SODIUM [Concomitant]
  7. IMDUR [Concomitant]
  8. POTASSIUM CHLORIDE [Concomitant]

REACTIONS (4)
  - DYSPNOEA [None]
  - FATIGUE [None]
  - FEELING ABNORMAL [None]
  - WEIGHT INCREASED [None]
